FAERS Safety Report 15780566 (Version 2)
Quarter: 2019Q1

REPORT INFORMATION
  Report Type: Spontaneous
  Country: US (occurrence: US)
  Receive Date: 20190102
  Receipt Date: 20190128
  Transmission Date: 20190417
  Serious: Yes (Other)
  Sender: FDA-Public Use
  Company Number: US-MYLANLABS-2018M1094336

PATIENT

DRUGS (1)
  1. ESTRADIOL. [Suspect]
     Active Substance: ESTRADIOL
     Indication: HORMONE LEVEL ABNORMAL
     Dosage: UNK
     Route: 048
     Dates: start: 20091117, end: 201003

REACTIONS (5)
  - Metastasis [Unknown]
  - Disability [Unknown]
  - Benign hepatic neoplasm [Unknown]
  - Apparent death [Unknown]
  - Muscle spasms [Unknown]
